FAERS Safety Report 14194503 (Version 1)
Quarter: 2017Q4

REPORT INFORMATION
  Report Type: Spontaneous
  Country: US (occurrence: US)
  Receive Date: 20171115
  Receipt Date: 20171115
  Transmission Date: 20180321
  Serious: No
  Sender: FDA-Public Use
  Company Number: None

PATIENT

DRUGS (1)
  1. HEMIN FOR INJECTION [Suspect]
     Active Substance: HEMIN
     Route: 041

REACTIONS (1)
  - Product physical consistency issue [None]

NARRATIVE: CASE EVENT DATE: 20170925
